FAERS Safety Report 21486280 (Version 1)
Quarter: 2022Q4

REPORT INFORMATION
  Report Type: Spontaneous
  Country: CA (occurrence: CA)
  Receive Date: 20221020
  Receipt Date: 20221020
  Transmission Date: 20230113
  Serious: Yes (Other)
  Sender: FDA-Public Use
  Company Number: CA-PFIZER INC-202201230121

PATIENT
  Age: 54 Year
  Sex: Male

DRUGS (6)
  1. METHOTREXATE SODIUM [Suspect]
     Active Substance: METHOTREXATE SODIUM
     Dosage: 20 MG, WEEKLY
     Route: 058
  2. FENTANYL [Concomitant]
     Active Substance: FENTANYL
     Dosage: 60 UG (PATCH)
  3. PREGABALIN [Concomitant]
     Active Substance: PREGABALIN
  4. DULOXETINE [Concomitant]
     Active Substance: DULOXETINE
  5. TRAZODONE [Concomitant]
     Active Substance: TRAZODONE HYDROCHLORIDE
     Dosage: EVERY NIGHT AT BEDTIME(QHS)
  6. STELARA [Concomitant]
     Active Substance: USTEKINUMAB
     Dosage: EVERY 4 WEEKS
     Dates: start: 2013

REACTIONS (6)
  - Arthritis [Not Recovered/Not Resolved]
  - Loss of personal independence in daily activities [Not Recovered/Not Resolved]
  - Off label use [Unknown]
  - Back pain [Not Recovered/Not Resolved]
  - Gait disturbance [Not Recovered/Not Resolved]
  - Musculoskeletal discomfort [Not Recovered/Not Resolved]

NARRATIVE: CASE EVENT DATE: 20220101
